FAERS Safety Report 20763144 (Version 9)
Quarter: 2024Q4

REPORT INFORMATION
  Report Type: Spontaneous
  Country: US (occurrence: US)
  Receive Date: 20220428
  Receipt Date: 20241104
  Transmission Date: 20250115
  Serious: Yes (Hospitalization, Other)
  Sender: PFIZER
  Company Number: US-PFIZER INC-202200527394

PATIENT
  Age: 38 Year
  Sex: Female
  Weight: 163.75 kg

DRUGS (13)
  1. IBRANCE [Suspect]
     Active Substance: PALBOCICLIB
     Indication: Breast cancer female
     Dosage: 125 MG, CYCLIC (TAKE ON DAYS 1-21 OF A 28 DAY CYCLE. TAKE WITH OR WITHOUT FOOD)
     Route: 048
     Dates: start: 20220402
  2. IBRANCE [Suspect]
     Active Substance: PALBOCICLIB
     Indication: Invasive ductal breast carcinoma
  3. IBRANCE [Suspect]
     Active Substance: PALBOCICLIB
     Indication: Breast cancer stage IV
  4. LETROZOLE [Suspect]
     Active Substance: LETROZOLE
     Indication: Invasive ductal breast carcinoma
     Dosage: UNK, [SHE IS STILL ON LETROZOLE]
     Dates: start: 20220402
  5. LETROZOLE [Suspect]
     Active Substance: LETROZOLE
     Indication: Breast cancer female
  6. LETROZOLE [Suspect]
     Active Substance: LETROZOLE
     Indication: Breast cancer stage IV
  7. GOSERELIN [Suspect]
     Active Substance: GOSERELIN
     Indication: Invasive ductal breast carcinoma
     Dosage: UNK, [TREATMENT AND SUPPORTIVE CARE: CONTINUE GOSERELIN]
  8. GOSERELIN [Suspect]
     Active Substance: GOSERELIN
     Indication: Breast cancer
  9. GOSERELIN [Suspect]
     Active Substance: GOSERELIN
     Indication: Breast cancer stage IV
  10. LUPRON [Suspect]
     Active Substance: LEUPROLIDE ACETATE
     Indication: Breast cancer female
     Dosage: UNK
     Dates: start: 20220402, end: 20230310
  11. LUPRON [Suspect]
     Active Substance: LEUPROLIDE ACETATE
     Indication: Breast cancer stage IV
     Dosage: UNK UNK, MONTHLY
  12. ZOMETA [Suspect]
     Active Substance: ZOLEDRONIC ACID
     Indication: Breast cancer female
     Dosage: INFUSION
     Dates: end: 20230310
  13. ZOMETA [Suspect]
     Active Substance: ZOLEDRONIC ACID
     Indication: Breast cancer stage IV
     Dosage: INFUSION

REACTIONS (7)
  - Seizure [Unknown]
  - Hot flush [Unknown]
  - Night sweats [Unknown]
  - Hair growth abnormal [Unknown]
  - Myalgia [Unknown]
  - Alopecia [Unknown]
  - Weight increased [Unknown]

NARRATIVE: CASE EVENT DATE: 20220401
